FAERS Safety Report 7641969-1 (Version None)
Quarter: 2011Q3

REPORT INFORMATION
  Report Type: 
  Country: None (occurrence: None)
  Receive Date: 20110728
  Receipt Date: 20110711
  Transmission Date: 20111222
  Serious: No
  Sender: FDA-Public Use
  Company Number: US-B.I. PHARMACEUTICALS,INC./RIDGEFIELD-2011-BP-17436BP

PATIENT
  Sex: Female

DRUGS (6)
  1. ZANTAC 150 [Suspect]
     Indication: DYSPEPSIA
     Dosage: 150 MG
     Route: 048
     Dates: start: 20110708
  2. LISINOPRIL [Concomitant]
     Indication: HYPERTENSION
  3. SIMVASTATIN [Concomitant]
     Indication: BLOOD CHOLESTEROL INCREASED
  4. FLECAINIDE ACETATE [Concomitant]
     Indication: ARRHYTHMIA
  5. POTASSIUM [Concomitant]
     Indication: ROUTINE HEALTH MAINTENANCE
  6. ATENOLOL [Concomitant]
     Indication: HYPERTENSION

REACTIONS (1)
  - DRY MOUTH [None]
